FAERS Safety Report 16444949 (Version 2)
Quarter: 2021Q1

REPORT INFORMATION
  Report Type: Spontaneous
  Country: DE (occurrence: DE)
  Receive Date: 20190618
  Receipt Date: 20210308
  Transmission Date: 20210419
  Serious: Yes (Other)
  Sender: FDA-Public Use
  Company Number: DE-AUROBINDO-AUR-APL-2019-034390

PATIENT
  Age: 51 Year
  Sex: Male
  Weight: 82 kg

DRUGS (2)
  1. CIPROFLOXACIN. [Suspect]
     Active Substance: CIPROFLOXACIN
     Indication: PRODUCT USED FOR UNKNOWN INDICATION
     Dosage: 500 MILLIGRAM, 1?0?1 EACH
     Route: 048
     Dates: start: 20170612, end: 20170626
  2. IBUPROFEN. [Suspect]
     Active Substance: IBUPROFEN
     Indication: PRODUCT USED FOR UNKNOWN INDICATION
     Dosage: UNK, 400 MG UNTIL SURGERY, THEN 800 MG UP TO 3 TIMES A DAY
     Route: 048
     Dates: start: 2017, end: 20171007

REACTIONS (60)
  - Polyneuropathy [Recovered/Resolved]
  - Nasal dryness [Not Recovered/Not Resolved]
  - Food intolerance [Not Recovered/Not Resolved]
  - Vertebral artery hypoplasia [Recovered/Resolved with Sequelae]
  - Myelopathy [Recovered/Resolved with Sequelae]
  - Photosensitivity reaction [Not Recovered/Not Resolved]
  - Hypersensitivity [Not Recovered/Not Resolved]
  - Disturbance in attention [Not Recovered/Not Resolved]
  - Chronic sinusitis [Recovering/Resolving]
  - Stress [Not Recovered/Not Resolved]
  - Autonomic nervous system imbalance [Not Recovered/Not Resolved]
  - Sleep apnoea syndrome [Not Recovered/Not Resolved]
  - Vitamin D deficiency [Not Recovered/Not Resolved]
  - Hernia [Recovered/Resolved]
  - Sleep disorder [Not Recovered/Not Resolved]
  - Visual impairment [Not Recovered/Not Resolved]
  - Paraesthesia [Not Recovered/Not Resolved]
  - Thirst [Not Recovered/Not Resolved]
  - T-lymphocyte count decreased [Not Recovered/Not Resolved]
  - Intervertebral disc protrusion [Recovered/Resolved with Sequelae]
  - Back pain [Recovering/Resolving]
  - Spinal pain [Recovered/Resolved with Sequelae]
  - Bladder discomfort [Not Recovered/Not Resolved]
  - Impaired work ability [Recovered/Resolved]
  - Fatigue [Not Recovered/Not Resolved]
  - Microbiology test abnormal [Not Recovered/Not Resolved]
  - Muscle atrophy [Not Recovered/Not Resolved]
  - Perineurial cyst [Not Recovered/Not Resolved]
  - Spinal disorder [Not Recovered/Not Resolved]
  - Pain in jaw [Not Recovered/Not Resolved]
  - Weight decreased [Not Recovered/Not Resolved]
  - Muscle tightness [Not Recovered/Not Resolved]
  - Tinnitus [Recovering/Resolving]
  - Headache [Not Recovered/Not Resolved]
  - Diarrhoea [Recovering/Resolving]
  - Dysbiosis [Recovering/Resolving]
  - Middle insomnia [Not Recovered/Not Resolved]
  - Adverse reaction [Not Recovered/Not Resolved]
  - Haematochezia [Unknown]
  - Facet joint syndrome [Recovered/Resolved with Sequelae]
  - Gait disturbance [Recovering/Resolving]
  - Blood pressure decreased [Unknown]
  - Hypotension [Recovering/Resolving]
  - Abdominal discomfort [Unknown]
  - Restlessness [Not Recovered/Not Resolved]
  - Amino acid level decreased [Not Recovered/Not Resolved]
  - Cervicobrachial syndrome [Not Recovered/Not Resolved]
  - Dry mouth [Not Recovered/Not Resolved]
  - Burning sensation [Not Recovered/Not Resolved]
  - Heart rate increased [Recovering/Resolving]
  - Spinal instability [Recovered/Resolved with Sequelae]
  - Magnesium deficiency [Recovering/Resolving]
  - Blood folate increased [Not Recovered/Not Resolved]
  - Blood catecholamines decreased [Not Recovered/Not Resolved]
  - Tendon pain [Recovering/Resolving]
  - Eye pain [Not Recovered/Not Resolved]
  - Dizziness [Recovering/Resolving]
  - Hyperacusis [Not Recovered/Not Resolved]
  - Dry eye [Not Recovered/Not Resolved]
  - Ligament injury [Not Recovered/Not Resolved]

NARRATIVE: CASE EVENT DATE: 2017
